FAERS Safety Report 6213889-0 (Version None)
Quarter: 2009Q2

REPORT INFORMATION
  Report Type: 
  Country: None (occurrence: None)
  Receive Date: 20090602
  Receipt Date: 20090602
  Transmission Date: 20091009
  Serious: Yes (Other)
  Sender: FDA-Public Use
  Company Number: None

PATIENT
  Sex: Female
  Weight: 54.4316 kg

DRUGS (1)
  1. ZYVOX [Suspect]
     Indication: POST PROCEDURAL INFECTION
     Dosage: 400MG 2X PER DAY PO
     Route: 048
     Dates: start: 20090528, end: 20090601

REACTIONS (2)
  - STEVENS-JOHNSON SYNDROME [None]
  - VAGINAL ULCERATION [None]
